FAERS Safety Report 7308078-2 (Version None)
Quarter: 2011Q1

REPORT INFORMATION
  Report Type: 
  Country: None (occurrence: None)
  Receive Date: 20110210
  Receipt Date: 20110131
  Transmission Date: 20110831
  Serious: No
  Sender: FDA-Public Use
  Company Number: JP1-P-013669

PATIENT
  Age: 17 Year
  Sex: Male

DRUGS (1)
  1. XYREM [Suspect]
     Indication: NARCOLEPSY
     Dosage: 6 GM (3 GM, 2 IN 1 D), ORAL
     Route: 048
     Dates: start: 20100615

REACTIONS (7)
  - WEIGHT DECREASED [None]
  - JOINT DISLOCATION [None]
  - PAIN [None]
  - DECREASED APPETITE [None]
  - FALL [None]
  - BOWEL MOVEMENT IRREGULARITY [None]
  - DIARRHOEA [None]
